FAERS Safety Report 4295081-2 (Version None)
Quarter: 2004Q1

REPORT INFORMATION
  Report Type: 
  Country: None (occurrence: None)
  Receive Date: 20040216
  Receipt Date: 20040211
  Transmission Date: 20041129
  Serious: Yes (Other)
  Sender: FDA-Public Use
  Company Number: US-GLAXOSMITHKLINE-A0497829A

PATIENT
  Age: 7 Year
  Sex: Male

DRUGS (2)
  1. LAMICTAL [Suspect]
     Indication: EPILEPSY
     Dosage: 75MG TWICE PER DAY
     Route: 048
     Dates: start: 20020101
  2. DEPAKOTE [Suspect]
     Indication: CONVULSION
     Dosage: 500MG TWICE PER DAY
     Dates: start: 20000101, end: 20030901

REACTIONS (5)
  - CONVULSION [None]
  - DRUG LEVEL FLUCTUATING [None]
  - DYSARTHRIA [None]
  - MUSCULAR WEAKNESS [None]
  - TREMOR [None]
